FAERS Safety Report 16751174 (Version 2)
Quarter: 2019Q3

REPORT INFORMATION
  Report Type: Spontaneous
  Country: JP (occurrence: JP)
  Receive Date: 20190828
  Receipt Date: 20190911
  Transmission Date: 20191005
  Serious: Yes (Hospitalization, Other)
  Sender: FDA-Public Use
  Company Number: JP-009507513-1908JPN002154J

PATIENT
  Age: 5 Decade
  Sex: Female
  Weight: 63 kg

DRUGS (12)
  1. BROTIZOLAM [Concomitant]
     Active Substance: BROTIZOLAM
     Dosage: 0.25 MILLIGRAM, VDS
     Route: 065
  2. ONETRAM [Concomitant]
     Active Substance: TRAMADOL HYDROCHLORIDE
     Dosage: 1 UNK
     Route: 048
  3. REFLEX [Suspect]
     Active Substance: MIRTAZAPINE
     Dosage: 30 MILLIGRAM
     Route: 048
  4. ESCITALOPRAM OXALATE. [Concomitant]
     Active Substance: ESCITALOPRAM OXALATE
     Dosage: 10 MILLIGRAM,1T A
     Route: 048
  5. PROCHLORPERAZINE. [Concomitant]
     Active Substance: PROCHLORPERAZINE
     Dosage: 5 MILLIGRAM,3T N
     Route: 048
  6. CELESTAMINE N [Concomitant]
     Active Substance: BETAMETHASONE
     Dosage: 2 DOSAGE FORM,VDS
     Route: 048
  7. ACETAMINOPHEN. [Concomitant]
     Active Substance: ACETAMINOPHEN
     Dosage: 500 MILLIGRAM, QID
     Route: 048
  8. VONOPRAZAN FUMARATE [Concomitant]
     Active Substance: VONOPRAZAN FUMURATE
     Dosage: 20 MILLIGRAM, VDS
     Route: 048
  9. METOCLOPRAMIDE. [Concomitant]
     Active Substance: METOCLOPRAMIDE
     Dosage: 5 MILLIGRAM,1T DOSAGE UNKNOWN
     Route: 048
  10. NORTRIPTYLINE HYDROCHLORIDE. [Concomitant]
     Active Substance: NORTRIPTYLINE HYDROCHLORIDE
     Dosage: 20 MILLIGRAM,VDS
     Route: 048
  11. ONEDURO [Concomitant]
     Active Substance: FENTANYL
     Dosage: 0.84 MILLIGRAM,1 SHEET / DAY
     Route: 003
  12. DOMPERIDONE [Concomitant]
     Active Substance: DOMPERIDONE
     Dosage: 10 MILLIGRAM,BEFORE EVERY MEAL
     Route: 048

REACTIONS (2)
  - Neuroleptic malignant syndrome [Unknown]
  - Thalamus haemorrhage [Unknown]
